FAERS Safety Report 14266431 (Version 1)
Quarter: 2017Q4

REPORT INFORMATION
  Report Type: Spontaneous
  Country: US (occurrence: US)
  Receive Date: 20171208
  Receipt Date: 20171208
  Transmission Date: 20180321
  Serious: No
  Sender: FDA-Public Use
  Company Number: None

PATIENT
  Age: 74 Year
  Sex: Female
  Weight: 54.9 kg

DRUGS (11)
  1. MAGNESIUM [Concomitant]
     Active Substance: MAGNESIUM
  2. XIIDRA [Suspect]
     Active Substance: LIFITEGRAST
     Indication: DRY EYE
     Dosage: ?          QUANTITY:60 CAPSULE(S);?
     Route: 047
     Dates: start: 20160926, end: 20170410
  3. TURMERIC [Concomitant]
     Active Substance: HERBALS\TURMERIC
  4. MSM [Concomitant]
     Active Substance: DIMETHYL SULFONE
  5. LUTEIN [Concomitant]
     Active Substance: LUTEIN
  6. CALCIUM [Concomitant]
     Active Substance: CALCIUM
  7. VITAMIN C [Concomitant]
     Active Substance: ASCORBIC ACID
  8. ZINC. [Concomitant]
     Active Substance: ZINC
  9. VITAMIN D [Concomitant]
     Active Substance: CHOLECALCIFEROL
  10. VITAMIN E [Concomitant]
     Active Substance: .ALPHA.-TOCOPHEROL
  11. FISH OIL [Concomitant]
     Active Substance: FISH OIL

REACTIONS (6)
  - Eye disorder [None]
  - Eye irritation [None]
  - Vitreous floaters [None]
  - Impaired driving ability [None]
  - Vision blurred [None]
  - Ocular discomfort [None]

NARRATIVE: CASE EVENT DATE: 20160926
